FAERS Safety Report 6544427-0 (Version None)
Quarter: 2010Q1

REPORT INFORMATION
  Report Type: 
  Country: None (occurrence: None)
  Receive Date: 20100120
  Receipt Date: 20100120
  Transmission Date: 20100710
  Serious: No
  Sender: FDA-Public Use
  Company Number: None

PATIENT
  Sex: Female

DRUGS (1)
  1. TIZANIDINE HCL [Suspect]
     Dosage: 4 MG TWICE ORAL
     Route: 048

REACTIONS (3)
  - GASTROOESOPHAGEAL REFLUX DISEASE [None]
  - REACTION TO COLOURING [None]
  - URTICARIA [None]
